FAERS Safety Report 6318270-1 (Version None)
Quarter: 2009Q3

REPORT INFORMATION
  Report Type: 
  Country: None (occurrence: None)
  Receive Date: 20090820
  Receipt Date: 20090820
  Transmission Date: 20100115
  Serious: No
  Sender: FDA-Public Use
  Company Number: None

PATIENT
  Age: 57 Year
  Sex: Male

DRUGS (1)
  1. NEUPOGEN [Suspect]
     Indication: NEUTROPENIA
     Dosage: 480 MCG ONCE SQ
     Dates: start: 20090610, end: 20090615

REACTIONS (4)
  - PRURITUS [None]
  - PURPURA [None]
  - RASH [None]
  - URTICARIA [None]
